FAERS Safety Report 17407828 (Version 4)
Quarter: 2020Q2

REPORT INFORMATION
  Report Type: Spontaneous
  Country: US (occurrence: US)
  Receive Date: 20200212
  Receipt Date: 20200413
  Transmission Date: 20200713
  Serious: Yes (Other)
  Sender: FDA-Public Use
  Company Number: US-PFIZER INC-2019092845

PATIENT
  Age: 77 Year
  Sex: Female
  Weight: 84 kg

DRUGS (7)
  1. LYRICA [Suspect]
     Active Substance: PREGABALIN
     Indication: NEURALGIA
     Dosage: 150 MG, AS NEEDED (6 CAPSULES BY MOUTH AS NEEDED)
     Route: 048
     Dates: start: 201902
  2. LYRICA [Suspect]
     Active Substance: PREGABALIN
     Indication: NERVE INJURY
     Dosage: 125 MG, AS NEEDED  (5 CAPSULES BY MOUTH IN THE EVENING AS NEEDED)
     Route: 048
  3. LYRICA [Suspect]
     Active Substance: PREGABALIN
     Dosage: 25MG AS NEEDED (TAKE 4 CAPS BY MOUTH AT BEDTIME AS NEEDED MAY TAKE AN EXTRA 1-2 DURING THE NIGHT)
     Route: 048
  4. LYRICA [Suspect]
     Active Substance: PREGABALIN
     Dosage: UNK, 1X/DAY (4-8 TABLETS ONCE A DAY)
     Route: 048
  5. LYRICA [Suspect]
     Active Substance: PREGABALIN
     Indication: PAIN
     Dosage: UNK, 2X/DAY (TAKE 4 TO 6 TABLETS TWICE A DAY)
     Route: 048
  6. LYRICA [Suspect]
     Active Substance: PREGABALIN
     Dosage: 4 CAPSULES AROUND 8PM,ANOTHER 4 CAPSULES AT 9PM AT 2 OR 3 TO TAKE ANOTHER 100MG TO 200MG
     Route: 048
  7. LYRICA [Suspect]
     Active Substance: PREGABALIN
     Dosage: TAKE 4 TABLETS AT 8 PM, IF NOT EFFECTIVE, MAY TAKE AN ADDITIONAL 4 TABLETS AT 9 PM. MAY TAKE 2-4 TAB
     Route: 048

REACTIONS (3)
  - Drug dependence [Unknown]
  - Intentional product use issue [Unknown]
  - Drug ineffective [Unknown]

NARRATIVE: CASE EVENT DATE: 201902
